FAERS Safety Report 17211012 (Version 2)
Quarter: 2020Q1

REPORT INFORMATION
  Report Type: Spontaneous
  Country: PT (occurrence: PT)
  Receive Date: 20191227
  Receipt Date: 20200204
  Transmission Date: 20200409
  Serious: Yes (Other)
  Sender: FDA-Public Use
  Company Number: PT-BAXTER-2019BAX026531

PATIENT
  Age: 50 Year
  Sex: Female

DRUGS (23)
  1. ABACAVIR. [Concomitant]
     Active Substance: ABACAVIR
     Indication: ANTIVIRAL TREATMENT
  2. LAMIVUDINE. [Concomitant]
     Active Substance: LAMIVUDINE
     Indication: ACQUIRED IMMUNODEFICIENCY SYNDROME
     Route: 065
  3. LAMIVUDINE. [Concomitant]
     Active Substance: LAMIVUDINE
     Indication: HIV INFECTION
  4. METHOTREXATE. [Suspect]
     Active Substance: METHOTREXATE
     Indication: CENTRAL NERVOUS SYSTEM LEUKAEMIA
     Dosage: CYCLICAL; 3 CYCLE, R-HYPER-CVAD REGIMEN
     Route: 037
     Dates: start: 201806
  5. CYTARABINE. [Suspect]
     Active Substance: CYTARABINE
     Indication: CENTRAL NERVOUS SYSTEM LEUKAEMIA
  6. DEXMETHASONE [Suspect]
     Active Substance: DEXAMETHASONE
     Indication: CENTRAL NERVOUS SYSTEM LEUKAEMIA
     Dosage: CYCLICAL; 3 CYCLE, R-HYPER-CVAD REGIMEN
     Route: 037
     Dates: start: 201806
  7. RITUXIMAB. [Suspect]
     Active Substance: RITUXIMAB
     Indication: CENTRAL NERVOUS SYSTEM LEUKAEMIA
     Dosage: CYCLICAL; 3 CYCLE, R-HYPER-CVAD REGIMEN
     Route: 037
     Dates: start: 201806
  8. ABACAVIR. [Concomitant]
     Active Substance: ABACAVIR
     Indication: HIV INFECTION
  9. ENDOXAN [Suspect]
     Active Substance: CYCLOPHOSPHAMIDE
     Indication: CENTRAL NERVOUS SYSTEM LEUKAEMIA
     Dosage: CYCLICAL; 3 CYCLE, R-HYPER-CVAD REGIMEN
     Route: 037
     Dates: start: 201806
  10. ENDOXAN [Suspect]
     Active Substance: CYCLOPHOSPHAMIDE
     Indication: BURKITT^S LEUKAEMIA
  11. RITUXIMAB. [Suspect]
     Active Substance: RITUXIMAB
     Indication: BURKITT^S LEUKAEMIA
  12. DOXIL [Suspect]
     Active Substance: DOXORUBICIN HYDROCHLORIDE
     Indication: CENTRAL NERVOUS SYSTEM LEUKAEMIA
  13. DEXMETHASONE [Suspect]
     Active Substance: DEXAMETHASONE
     Indication: BURKITT^S LEUKAEMIA
  14. DOLUTEGRAVIR [Concomitant]
     Active Substance: DOLUTEGRAVIR
     Indication: HIV INFECTION
  15. ABACAVIR. [Concomitant]
     Active Substance: ABACAVIR
     Indication: ACQUIRED IMMUNODEFICIENCY SYNDROME
     Route: 065
  16. DOXIL [Suspect]
     Active Substance: DOXORUBICIN HYDROCHLORIDE
     Indication: BURKITT^S LEUKAEMIA
     Dosage: R-HYPER-CVAD REGIMEN
     Route: 037
     Dates: start: 201806
  17. METHOTREXATE. [Suspect]
     Active Substance: METHOTREXATE
     Indication: BURKITT^S LEUKAEMIA
  18. VINCRISTINE [Suspect]
     Active Substance: VINCRISTINE
     Indication: BURKITT^S LEUKAEMIA
     Dosage: CYCLICAL; 3 CYCLE, R-HYPER-CVAD REGIMEN
     Route: 037
     Dates: start: 201806
  19. VINCRISTINE [Suspect]
     Active Substance: VINCRISTINE
     Indication: CENTRAL NERVOUS SYSTEM LEUKAEMIA
  20. CYTARABINE. [Suspect]
     Active Substance: CYTARABINE
     Indication: BURKITT^S LEUKAEMIA
     Dosage: CYCLICAL; 3 CYCLE, R-HYPER-CVAD REGIMEN
     Route: 037
     Dates: start: 201806
  21. DOLUTEGRAVIR [Concomitant]
     Active Substance: DOLUTEGRAVIR
     Indication: ACQUIRED IMMUNODEFICIENCY SYNDROME
     Route: 065
  22. DOLUTEGRAVIR [Concomitant]
     Active Substance: DOLUTEGRAVIR
     Indication: ANTIVIRAL TREATMENT
  23. LAMIVUDINE. [Concomitant]
     Active Substance: LAMIVUDINE
     Indication: ANTIVIRAL TREATMENT

REACTIONS (7)
  - Paraparesis [Recovering/Resolving]
  - Urinary incontinence [Recovering/Resolving]
  - Spinal cord injury [Recovering/Resolving]
  - Areflexia [Recovering/Resolving]
  - Myelopathy [Recovering/Resolving]
  - Anal incontinence [Recovering/Resolving]
  - Hypoaesthesia [Recovered/Resolved]

NARRATIVE: CASE EVENT DATE: 201812
